FAERS Safety Report 4590513-4 (Version None)
Quarter: 2005Q1

REPORT INFORMATION
  Report Type: 
  Country: None (occurrence: None)
  Receive Date: 20050218
  Receipt Date: 20050218
  Transmission Date: 20050727
  Serious: Yes (Other)
  Sender: FDA-Public Use
  Company Number: None

PATIENT
  Sex: Male
  Weight: 59.4 kg

DRUGS (2)
  1. ZITHROMAX [Suspect]
     Indication: PNEUMONIA
     Dosage: 500 MG  DAILY  INTRAVENOUS
     Route: 042
     Dates: start: 20050202, end: 20050202
  2. ZITHROMAX [Suspect]
     Indication: URINARY TRACT INFECTION
     Dosage: 500 MG  DAILY  INTRAVENOUS
     Route: 042
     Dates: start: 20050202, end: 20050202

REACTIONS (1)
  - RASH [None]
